FAERS Safety Report 10223117 (Version 2)
Quarter: 2014Q4

REPORT INFORMATION
  Report Type: Report from Study
  Country: CN (occurrence: CN)
  Receive Date: 20140607
  Receipt Date: 20141017
  Transmission Date: 20150528
  Serious: Yes (Death)
  Sender: FDA-Public Use
  Company Number: PHHY2014CN069090

PATIENT
  Age: 10 Year
  Sex: Male

DRUGS (1)
  1. EXJADE [Suspect]
     Active Substance: DEFERASIROX
     Indication: APLASTIC ANAEMIA
     Dosage: 1720 MG, QD
     Route: 048
     Dates: start: 20131212

REACTIONS (1)
  - Death [Fatal]

NARRATIVE: CASE EVENT DATE: 20140605
